FAERS Safety Report 9250259 (Version 2)
Quarter: 2013Q2

REPORT INFORMATION
  Report Type: Spontaneous
  Country: CY (occurrence: CY)
  Receive Date: 20130424
  Receipt Date: 20130620
  Transmission Date: 20140414
  Serious: Yes (Life-Threatening, Hospitalization, Disabling, Other)
  Sender: FDA-Public Use
  Company Number: CY-ROCHE-1217143

PATIENT
  Age: 72 Year
  Sex: Male

DRUGS (5)
  1. BEVACIZUMAB [Suspect]
     Indication: COLON CANCER STAGE IV
     Route: 041
     Dates: start: 20121119, end: 20130207
  2. OXALIPLATIN [Concomitant]
     Indication: COLON CANCER STAGE IV
     Route: 041
     Dates: start: 20121119, end: 20130207
  3. 5-FU [Concomitant]
     Indication: COLON CANCER STAGE IV
     Route: 040
     Dates: start: 20121119, end: 20130207
  4. 5-FU [Concomitant]
     Route: 041
     Dates: start: 20121119, end: 20130207
  5. FOLINIC ACID [Concomitant]
     Indication: COLON CANCER
     Route: 065
     Dates: start: 20121119

REACTIONS (3)
  - Peripheral embolism [Unknown]
  - Leg amputation [Unknown]
  - Gangrene [Unknown]
